FAERS Safety Report 18539495 (Version 1)
Quarter: 2020Q4

REPORT INFORMATION
  Report Type: Spontaneous
  Country: US (occurrence: US)
  Receive Date: 20201124
  Receipt Date: 20201124
  Transmission Date: 20210114
  Serious: No
  Sender: FDA-Public Use
  Company Number: US-THERAPEUTICSMD-2020TMD03815

PATIENT
  Age: 21 Year
  Sex: Female
  Weight: 49.89 kg

DRUGS (2)
  1. ANNOVERA [Suspect]
     Active Substance: ETHINYL ESTRADIOL\SEGESTERONE ACETATE
     Indication: CONTRACEPTION
     Dosage: 1 RING, INSERTED FOR 21 DAYS AND REMOVED FOR 7 DAYS
     Route: 067
     Dates: start: 20200804
  2. ANNOVERA [Suspect]
     Active Substance: ETHINYL ESTRADIOL\SEGESTERONE ACETATE
     Dosage: 1 RING, KEPT IN LONGER THAN 21 DAYS
     Dates: start: 20200804, end: 2020

REACTIONS (6)
  - Vaginal discharge [Unknown]
  - Pruritus [Recovered/Resolved]
  - Erythema [Recovered/Resolved]
  - Vaginal odour [Unknown]
  - Rash papular [Recovered/Resolved]
  - Inappropriate schedule of product administration [Recovered/Resolved]

NARRATIVE: CASE EVENT DATE: 202008
